FAERS Safety Report 5068969-2 (Version None)
Quarter: 2006Q3

REPORT INFORMATION
  Report Type: 
  Country: None (occurrence: None)
  Receive Date: 20060801
  Receipt Date: 20060801
  Transmission Date: 20061208
  Serious: Yes (Hospitalization)
  Sender: FDA-Public Use
  Company Number: None

PATIENT
  Age: 78 Year
  Sex: Male
  Weight: 127 kg

DRUGS (12)
  1. RISPERIDONE [Suspect]
     Indication: AGITATION
     Dosage: 0.75 MG DAILY PO
     Route: 048
  2. RISPERIDONE [Suspect]
     Indication: DEMENTIA
     Dosage: 0.75 MG DAILY PO
     Route: 048
  3. LANOXIN [Concomitant]
  4. TOPROL-XL [Concomitant]
  5. M.V.I. [Concomitant]
  6. VITC [Concomitant]
  7. ZINC SULFATE [Concomitant]
  8. COUMADIN [Concomitant]
  9. MACRODANTIN [Concomitant]
  10. NEURONTIN [Concomitant]
  11. ACETAMINOPHEN [Concomitant]
  12. MILK OF MAGNESIA TAB [Concomitant]

REACTIONS (6)
  - ESCHERICHIA INFECTION [None]
  - LUNG INFILTRATION [None]
  - MORGANELLA INFECTION [None]
  - NEUROLEPTIC MALIGNANT SYNDROME [None]
  - URINARY TRACT INFECTION [None]
  - UROSEPSIS [None]
